FAERS Safety Report 9197862 (Version 1)
Quarter: 2013Q1

REPORT INFORMATION
  Report Type: Spontaneous
  Country: US (occurrence: US)
  Receive Date: 20130328
  Receipt Date: 20130328
  Transmission Date: 20140127
  Serious: Yes (Hospitalization)
  Sender: FDA-Public Use
  Company Number: US-NOVOPROD-374122

PATIENT
  Age: 71 Year
  Sex: Female
  Weight: 80.27 kg

DRUGS (3)
  1. NOVOLOG FLEXPEN [Suspect]
     Indication: TYPE 2 DIABETES MELLITUS
     Dosage: SLIDING SCALE
     Route: 058
  2. LANTUS [Concomitant]
     Indication: TYPE 2 DIABETES MELLITUS
     Dosage: 30 U, QD
     Route: 058
  3. VERAPAMIL [Concomitant]
     Indication: HYPERTENSION
     Dosage: 240 MG, QD
     Route: 048

REACTIONS (4)
  - Dehydration [Recovered/Resolved]
  - Drug ineffective [Not Recovered/Not Resolved]
  - Blood glucose increased [Recovered/Resolved]
  - Blood glucose increased [Not Recovered/Not Resolved]
